FAERS Safety Report 10019910 (Version 1)
Quarter: 2014Q1

REPORT INFORMATION
  Report Type: Spontaneous
  Country: US (occurrence: US)
  Receive Date: 20140318
  Receipt Date: 20140318
  Transmission Date: 20141002
  Serious: No
  Sender: FDA-Public Use
  Company Number: US-GALDERMA-US14000613

PATIENT
  Age: 46 Year
  Sex: Female

DRUGS (7)
  1. MIRVASO (BRIMONIDINE) TOPICAL GEL, 0.33% [Suspect]
     Indication: ROSACEA
     Dosage: 0.33%
     Route: 061
     Dates: start: 201401, end: 201401
  2. DIFFERIN (ADAPALENE) CREAM, 0.1% [Concomitant]
     Indication: ROSACEA
     Route: 061
     Dates: start: 2006
  3. ACTONE [Concomitant]
     Indication: ROSACEA
     Route: 061
     Dates: start: 2006
  4. SHISEIDO FOUNDATION [Concomitant]
     Route: 061
  5. SHISEIDO CONCEALER [Concomitant]
     Route: 061
  6. SHISEIDO LIP PRODUCTS [Concomitant]
     Route: 061
  7. SHISEIDO EYE LINER [Concomitant]
     Route: 061

REACTIONS (3)
  - Condition aggravated [Recovered/Resolved]
  - Erythema [Recovered/Resolved]
  - Skin burning sensation [Recovered/Resolved]
